FAERS Safety Report 9175141 (Version 1)
Quarter: 2013Q1

REPORT INFORMATION
  Report Type: Spontaneous
  Country: GB (occurrence: None)
  Receive Date: 20130315
  Receipt Date: 20130315
  Transmission Date: 20140127
  Serious: Yes (Hospitalization)
  Sender: FDA-Public Use
  Company Number: 2013-03854

PATIENT
  Sex: Female

DRUGS (16)
  1. RAMIPRIL (UNKNOWN) (RAMIPRIL) [Suspect]
     Indication: PRODUCT USED FOR UNKNOWN INDICATION
     Dates: start: 20130108
  2. CALCIUM CHLORIDE\DEXTROSE\MAGNESIUM CHLORIDE\SODIUM CHLORIDE SOLUTION [Suspect]
     Indication: PERITONEAL DIALYSIS
  3. EXRANEAL /01416601/ (CALCIUM CHLORIDE DIHYDRATE, DEXTRIN, MAGNESIUM CHLORIDE ANHYDROUS, SODUM CHLORIDE, SODIUM LACTATE) [Suspect]
     Indication: PERITONEAL DIALYSIS
     Dosage: INTRAPERITONEAL
  4. DOXYCYCLINE HYCLATE [Suspect]
     Indication: PRODUCT USED FOR UNKNOWN INDICATION
  5. SALBUTAMOL (SALBUTAMOL) [Concomitant]
  6. SERETIDE (FLUTICASONE PROPIONATE) [Concomitant]
  7. BISOPROLOL (BISOPROLOL) [Concomitant]
  8. CINACALCET (CINACALCET) [Concomitant]
  9. CLOPIDOGREL (CLOPIDOGREL) [Concomitant]
  10. ROSOUVASTATIN (ROSUVASTATIN) [Concomitant]
  11. ALFACALCIDOL (ALFACALCIDOL) [Concomitant]
  12. SEVELAMER (SEVELAMER) [Concomitant]
  13. EPREX (EPOETIN ALFA) [Concomitant]
  14. LACUTLOSE (LACTULOSE) [Concomitant]
  15. HUMULIN (INSULIN HUMAN ZINC SUSPENSION) [Concomitant]
  16. LEVOTHYROXINE (LEVOTHYROXINE) [Concomitant]

REACTIONS (3)
  - Lower respiratory tract infection [None]
  - Asthma [None]
  - Blood pressure decreased [None]
